FAERS Safety Report 14384486 (Version 3)
Quarter: 2018Q1

REPORT INFORMATION
  Report Type: Report from Study
  Country: FR (occurrence: FR)
  Receive Date: 20180115
  Receipt Date: 20180321
  Transmission Date: 20180509
  Serious: Yes (Death, Hospitalization, Other)
  Sender: FDA-Public Use
  Company Number: FR-BRISTOL-MYERS SQUIBB COMPANY-BMS-2018-002336

PATIENT
  Age: 67 Year
  Sex: Male

DRUGS (2)
  1. IPILIMUMAB [Suspect]
     Active Substance: IPILIMUMAB
     Indication: MESOTHELIOMA MALIGNANT
     Dosage: 1 MG/KG, UNK
     Route: 042
     Dates: start: 20160823
  2. NIVOLUMAB [Suspect]
     Active Substance: NIVOLUMAB
     Indication: MESOTHELIOMA MALIGNANT
     Dosage: 3 MG/KG, UNK
     Route: 042
     Dates: start: 20160823, end: 20160920

REACTIONS (4)
  - Encephalopathy [Fatal]
  - General physical health deterioration [Unknown]
  - Asthenia [Unknown]
  - Decreased appetite [Unknown]

NARRATIVE: CASE EVENT DATE: 20160930
